FAERS Safety Report 25839934 (Version 1)
Quarter: 2025Q3

REPORT INFORMATION
  Report Type: Spontaneous
  Country: EU (occurrence: EU)
  Receive Date: 20250924
  Receipt Date: 20250924
  Transmission Date: 20251021
  Serious: Yes (Other)
  Sender: MICRO LABS
  Company Number: None

PATIENT
  Sex: Male

DRUGS (1)
  1. AMOXICILLIN [Suspect]
     Active Substance: AMOXICILLIN
     Indication: Upper respiratory tract infection
     Dosage: 3X1 G DAILY

REACTIONS (9)
  - Anterograde amnesia [Unknown]
  - Encephalopathy [Unknown]
  - Delinquency [Unknown]
  - Impulse-control disorder [Unknown]
  - Derealisation [Unknown]
  - Thinking abnormal [Unknown]
  - Illusion [Unknown]
  - Alcohol interaction [Unknown]
  - Alcohol interaction [Unknown]
